FAERS Safety Report 7756307-3 (Version None)
Quarter: 2011Q3

REPORT INFORMATION
  Report Type: 
  Country: None (occurrence: None)
  Receive Date: 20110916
  Receipt Date: 20110907
  Transmission Date: 20111222
  Serious: Yes (Other)
  Sender: FDA-Public Use
  Company Number: US-ROCHE-785019

PATIENT
  Sex: Female
  Weight: 56.7 kg

DRUGS (6)
  1. ACCUTANE [Suspect]
     Route: 065
     Dates: start: 19980730, end: 19980901
  2. ACCUTANE [Suspect]
     Indication: ACNE
     Route: 065
     Dates: start: 19970101
  3. BCP [Concomitant]
  4. ORTHO TRI-CYCLEN [Concomitant]
  5. ADVIL LIQUI-GELS [Concomitant]
  6. ACCUTANE [Suspect]
     Route: 065
     Dates: start: 19990101

REACTIONS (6)
  - ABORTION SPONTANEOUS [None]
  - COLITIS ULCERATIVE [None]
  - RASH [None]
  - DRY SKIN [None]
  - CROHN'S DISEASE [None]
  - INFLAMMATORY BOWEL DISEASE [None]
